FAERS Safety Report 5203345-0 (Version None)
Quarter: 2007Q1

REPORT INFORMATION
  Report Type: 
  Country: None (occurrence: None)
  Receive Date: 20070110
  Receipt Date: 20070104
  Transmission Date: 20070707
  Serious: Yes (Life-Threatening, Hospitalization)
  Sender: FDA-Public Use
  Company Number: PHBS2006NL18955

PATIENT
  Age: 31 Year
  Sex: Male

DRUGS (4)
  1. METHYLPHENIDATE HCL [Suspect]
     Indication: ATTENTION DEFICIT/HYPERACTIVITY DISORDER
     Dosage: 150 MG/D
     Route: 048
     Dates: start: 20050101
  2. METHYLPHENIDATE HCL [Suspect]
     Dosage: 1 G, ONCE/SINGLE
     Route: 048
  3. IBUPROFEN [Suspect]
     Dosage: 8 G, ONCE/SINGLE
     Route: 048
  4. ALCOHOL [Suspect]
     Dosage: 2 BOTTLES OF WINE
     Route: 048

REACTIONS (17)
  - AGITATION [None]
  - BLOOD ETHANOL INCREASED [None]
  - BLOOD POTASSIUM DECREASED [None]
  - BLOOD PRESSURE DECREASED [None]
  - DRUG LEVEL ABOVE THERAPEUTIC [None]
  - DYSKINESIA [None]
  - FEELING ABNORMAL [None]
  - HALLUCINATION [None]
  - HEART RATE INCREASED [None]
  - HYPOTHERMIA [None]
  - INTENTIONAL OVERDOSE [None]
  - MYDRIASIS [None]
  - PALPITATIONS [None]
  - SINUS TACHYCARDIA [None]
  - SUICIDE ATTEMPT [None]
  - SYMPATHOMIMETIC EFFECT [None]
  - URINARY RETENTION [None]
